FAERS Safety Report 19834103 (Version 1)
Quarter: 2021Q3

REPORT INFORMATION
  Report Type: Spontaneous
  Country: AU (occurrence: AU)
  Receive Date: 20210915
  Receipt Date: 20210915
  Transmission Date: 20211014
  Serious: Yes (Hospitalization)
  Sender: FDA-Public Use
  Company Number: AU-MYLANLABS-2021M1062325

PATIENT
  Age: 17 Year
  Sex: Male

DRUGS (11)
  1. GENTAMICIN. [Suspect]
     Active Substance: GENTAMICIN
     Indication: URINARY TRACT INFECTION BACTERIAL
     Dosage: 160 MILLIGRAM, QD (GIVEN FOR TWO...
     Route: 030
  2. NORMAL SALINE [Concomitant]
     Active Substance: SODIUM CHLORIDE
     Indication: VEHICLE SOLUTION USE
     Dosage: 2 MILLILITER (INJECTED IN THE ADDUCTOR MAGNUS MUSCLES)
     Route: 030
     Dates: start: 2020, end: 2020
  3. PREGABALIN. [Suspect]
     Active Substance: PREGABALIN
     Indication: MUSCLE SPASTICITY
  4. GENTAMICIN. [Suspect]
     Active Substance: GENTAMICIN
     Indication: KLEBSIELLA INFECTION
  5. TIZANIDINE. [Concomitant]
     Active Substance: TIZANIDINE
     Indication: MUSCLE SPASTICITY
     Dosage: UNK
     Route: 065
  6. NORMAL SALINE [Concomitant]
     Active Substance: SODIUM CHLORIDE
     Dosage: 5 MILLILITER (THE NEXT DAY, 5MLS OF STERILE NORMAL SALINE IN EACH MUSCLE, IN ONE SITE)
     Route: 030
     Dates: start: 2020, end: 2020
  7. BACLOFEN. [Suspect]
     Active Substance: BACLOFEN
     Indication: MUSCLE SPASTICITY
     Dosage: UNK
     Route: 048
  8. PREGABALIN. [Suspect]
     Active Substance: PREGABALIN
     Indication: SPINAL CORD INJURY
     Dosage: UNK
     Route: 065
  9. INFLUENZA VACCINE INACT SAG 3V [Suspect]
     Active Substance: INFLUENZA VIRUS VACCINE TRIVALENT TYPE A+B
     Indication: INFLUENZA IMMUNISATION
     Dosage: UNK
     Route: 065
     Dates: start: 2020, end: 2020
  10. TOXIN BOTULINUM A [Suspect]
     Active Substance: BOTULINUM TOXIN TYPE A
     Indication: MUSCLE SPASTICITY
     Dosage: 100 INTERNATIONAL UNIT (THE ADDUCTOR..
     Route: 030
     Dates: start: 2020, end: 2020
  11. TOXIN BOTULINUM A [Suspect]
     Active Substance: BOTULINUM TOXIN TYPE A
     Dosage: 100 INTERNATIONAL UNIT (THE NEXT DAY THE...
     Route: 030
     Dates: start: 2020, end: 2020

REACTIONS (3)
  - Liver function test abnormal [Unknown]
  - Myositis [Recovering/Resolving]
  - Somnolence [Unknown]

NARRATIVE: CASE EVENT DATE: 202005
